FAERS Safety Report 4481675-8 (Version None)
Quarter: 2004Q4

REPORT INFORMATION
  Report Type: 
  Country: None (occurrence: None)
  Receive Date: 20041021
  Receipt Date: 20041018
  Transmission Date: 20050328
  Serious: Yes (Other)
  Sender: FDA-Public Use
  Company Number: CA-MERCK-0410CAN00321

PATIENT
  Sex: Female

DRUGS (1)
  1. VIOXX [Suspect]
     Indication: SCIATICA
     Route: 048
     Dates: start: 20020101

REACTIONS (3)
  - ABDOMINAL PAIN UPPER [None]
  - CARDIAC DISORDER [None]
  - DYSPNOEA [None]
